FAERS Safety Report 18680702 (Version 3)
Quarter: 2021Q1

REPORT INFORMATION
  Report Type: Report from Study
  Country: US (occurrence: US)
  Receive Date: 20201230
  Receipt Date: 20210224
  Transmission Date: 20210419
  Serious: Yes (Hospitalization, Other)
  Sender: FDA-Public Use
  Company Number: US-GILEAD-2020-0510270

PATIENT
  Sex: Female

DRUGS (11)
  1. AMBRISENTAN [Suspect]
     Active Substance: AMBRISENTAN
     Indication: PRODUCT USED FOR UNKNOWN INDICATION
     Dosage: 5 MG, QD
     Route: 065
     Dates: start: 20171020
  2. PROPRANOLOL [Concomitant]
     Active Substance: PROPRANOLOL HYDROCHLORIDE
  3. URSODIOL. [Concomitant]
     Active Substance: URSODIOL
  4. PROAIR HFA [Concomitant]
     Active Substance: ALBUTEROL SULFATE
  5. FERROUS SULFATE. [Concomitant]
     Active Substance: FERROUS SULFATE
  6. CLIMARA [ESTRADIOL HEMIHYDRATE] [Concomitant]
  7. KLOR?CON [Concomitant]
     Active Substance: POTASSIUM CHLORIDE
  8. CALTRATE WITH VITAMIN D [Concomitant]
     Active Substance: CALCIUM CARBONATE\CHOLECALCIFEROL
  9. FUROSEMIDE. [Concomitant]
     Active Substance: FUROSEMIDE
  10. NEXIUM [Concomitant]
     Active Substance: ESOMEPRAZOLE MAGNESIUM
  11. VITAMIN C [ASCORBIC ACID;BIOFLAVONOIDS NOS] [Concomitant]

REACTIONS (5)
  - COVID-19 [Unknown]
  - Oesophageal varices haemorrhage [Unknown]
  - Anaemia [Not Recovered/Not Resolved]
  - Internal haemorrhage [Unknown]
  - Liver injury [Not Recovered/Not Resolved]
